FAERS Safety Report 6666254-6 (Version None)
Quarter: 2010Q2

REPORT INFORMATION
  Report Type: 
  Country: None (occurrence: None)
  Receive Date: 20100402
  Receipt Date: 20100322
  Transmission Date: 20101027
  Serious: Yes (Other)
  Sender: FDA-Public Use
  Company Number: US-JNJCH-2010007667

PATIENT
  Age: 61 Year
  Sex: Female
  Weight: 74.8 kg

DRUGS (6)
  1. ROLAIDS TAB [Suspect]
     Indication: DYSPEPSIA
     Dosage: TEXT:2 BEFORE BED
     Route: 048
  2. SINGULAIR ^DIECKMANN^ [Concomitant]
     Indication: ASTHMA
     Dosage: TEXT:10MG/ ONCE DAILY
     Route: 065
  3. INSULIN [Concomitant]
     Indication: DIABETES MELLITUS
     Dosage: TEXT:UNKNOWN
     Route: 065
  4. DIOVAN [Concomitant]
     Indication: HYPERTENSION
     Dosage: TEXT:325MG / ONCE DAILY
     Route: 065
  5. METOPROLOL [Concomitant]
     Indication: HYPERTENSION
     Dosage: TEXT:UNKNOWN
     Route: 065
  6. ALBUTEROL [Concomitant]
     Indication: ASTHMA
     Dosage: TEXT:UNKNOWN
     Route: 065

REACTIONS (5)
  - DEHYDRATION [None]
  - DIARRHOEA [None]
  - LOSS OF CONSCIOUSNESS [None]
  - NAUSEA [None]
  - PRODUCT ODOUR ABNORMAL [None]
